FAERS Safety Report 8165266-3 (Version None)
Quarter: 2012Q1

REPORT INFORMATION
  Report Type: 
  Country: None (occurrence: None)
  Receive Date: 20120222
  Receipt Date: 20120222
  Transmission Date: 20120608
  Serious: Yes (Life-Threatening, Hospitalization, Disabling)
  Sender: FDA-Public Use
  Company Number: None

PATIENT
  Sex: Female
  Weight: 58.0604 kg

DRUGS (1)
  1. SULFAMETHOXAZOLE AND TRIMETHOPRIM SINGLE STRENGTH [Suspect]
     Indication: CYSTITIS
     Dosage: 1 TABLET TWICE A DAY
     Dates: start: 20120114

REACTIONS (4)
  - ORAL CONTRACEPTION [None]
  - BLISTER [None]
  - SKIN EXFOLIATION [None]
  - SKIN BURNING SENSATION [None]
